FAERS Safety Report 24429429 (Version 1)
Quarter: 2024Q4

REPORT INFORMATION
  Report Type: Other
  Country: US (occurrence: US)
  Receive Date: 20241011
  Receipt Date: 20241011
  Transmission Date: 20250114
  Serious: Yes (Other)
  Sender: BIONPHARMA
  Company Number: US-Bion-014055

PATIENT
  Age: 26 Year
  Sex: Female

DRUGS (2)
  1. POTASSIUM CITRATE [Suspect]
     Active Substance: POTASSIUM CITRATE
     Indication: Product used for unknown indication
  2. SODIUM BICARBONATE [Concomitant]
     Active Substance: SODIUM BICARBONATE
     Indication: Blood pH decreased
     Dosage: 100 MEQ

REACTIONS (2)
  - Abortion missed [Unknown]
  - Exposure during pregnancy [Unknown]
